FAERS Safety Report 13247859 (Version 1)
Quarter: 2017Q1

REPORT INFORMATION
  Report Type: Spontaneous
  Country: JP (occurrence: FR)
  Receive Date: 20170217
  Receipt Date: 20170217
  Transmission Date: 20170428
  Serious: Yes (Hospitalization)
  Sender: FDA-Public Use
  Company Number: JP-SUNOVION-2017SUN000699

PATIENT

DRUGS (12)
  1. ALVESCO [Suspect]
     Active Substance: CICLESONIDE
     Indication: PRODUCT USED FOR UNKNOWN INDICATION
     Dosage: UNK
     Route: 055
     Dates: start: 20161012, end: 20161019
  2. DIMETANE                           /01727501/ [Suspect]
     Active Substance: CODEINE\GUAIFENESIN\PHENYLEPHRINE\PHENYLPROPANOLAMINE
     Indication: MASTICATION DISORDER
  3. KARDEGIC [Concomitant]
     Active Substance: ASPIRIN LYSINE
  4. FENOFIBRATE. [Concomitant]
     Active Substance: FENOFIBRATE
  5. DOLIPRANE [Concomitant]
     Active Substance: ACETAMINOPHEN
  6. IPERTEN [Concomitant]
     Active Substance: MANIDIPINE
  7. MESTINON [Concomitant]
     Active Substance: PYRIDOSTIGMINE BROMIDE
     Dosage: UNK UNK, QD
  8. LEVOTHYROX [Concomitant]
     Active Substance: LEVOTHYROXINE
  9. UVEDOSE [Concomitant]
     Active Substance: CHOLECALCIFEROL
  10. DIMETANE                           /01727501/ [Suspect]
     Active Substance: CODEINE\GUAIFENESIN\PHENYLEPHRINE\PHENYLPROPANOLAMINE
     Indication: DYSPHONIA
     Dosage: UNK
     Route: 065
     Dates: start: 20161012, end: 20161019
  11. AMAREL [Concomitant]
     Active Substance: GLIMEPIRIDE
  12. MOVICOL [Concomitant]
     Active Substance: POLYETHYLENE GLYCOL 3350\POTASSIUM CHLORIDE\SODIUM BICARBONATE\SODIUM CHLORIDE

REACTIONS (1)
  - Myasthenia gravis [Recovered/Resolved]

NARRATIVE: CASE EVENT DATE: 20161019
